FAERS Safety Report 21610265 (Version 1)
Quarter: 2022Q4

REPORT INFORMATION
  Report Type: Spontaneous
  Country: US (occurrence: None)
  Receive Date: 20221117
  Receipt Date: 20221117
  Transmission Date: 20230113
  Serious: Yes (Disabling)
  Sender: FDA-Public Use
  Company Number: None

PATIENT
  Age: 57 Year
  Sex: Female
  Weight: 72.57 kg

DRUGS (16)
  1. OMEPRAZOLE [Suspect]
     Active Substance: OMEPRAZOLE
     Indication: Gastrooesophageal reflux disease
     Dosage: FREQUENCY : DAILY;?
     Route: 048
  2. ESCITALOPRAM [Concomitant]
     Active Substance: ESCITALOPRAM OXALATE
  3. BUSPIRONL [Concomitant]
  4. SIMVASTATIN [Concomitant]
     Active Substance: SIMVASTATIN
  5. METFORMIN [Concomitant]
     Active Substance: METFORMIN HYDROCHLORIDE
  6. LISINOPRIL [Concomitant]
     Active Substance: LISINOPRIL
  7. ALENDRONATE [Concomitant]
     Active Substance: ALENDRONATE SODIUM
  8. FERROUS SULFATE [Concomitant]
     Active Substance: FERROUS SULFATE
  9. LACTOBACILLUS ACIDOPHILUS [Concomitant]
     Active Substance: LACTOBACILLUS ACIDOPHILUS
  10. PEPCID COMPLETE [Concomitant]
     Active Substance: CALCIUM CARBONATE\FAMOTIDINE\MAGNESIUM HYDROXIDE
  11. NOVOLOG [Concomitant]
  12. VICTOZA [Concomitant]
     Active Substance: LIRAGLUTIDE
  13. ZANTUS [Concomitant]
  14. NATURES WAY CHLORO FRESH INTERNAL DEODORANT DRINK [Concomitant]
  15. VICODEN [Concomitant]
  16. TRAMADOL [Concomitant]
     Active Substance: TRAMADOL

REACTIONS (4)
  - Bone disorder [None]
  - Arthropathy [None]
  - Osteoporosis [None]
  - Pain [None]

NARRATIVE: CASE EVENT DATE: 20220101
